FAERS Safety Report 24927617 (Version 1)
Quarter: 2025Q1

REPORT INFORMATION
  Report Type: Spontaneous
  Country: US (occurrence: None)
  Receive Date: 20250204
  Receipt Date: 20250204
  Transmission Date: 20250409
  Serious: Yes (Life-Threatening)
  Sender: FDA-CTU
  Company Number: None

PATIENT
  Age: 81 Year
  Sex: Female

DRUGS (2)
  1. HUMIRA [Suspect]
     Active Substance: ADALIMUMAB
     Indication: Rheumatoid arthritis
     Dosage: FREQUENCY : EVERY OTHER WEEK;?
  2. GABAPENTIN [Suspect]
     Active Substance: GABAPENTIN

REACTIONS (8)
  - Fall [None]
  - Insomnia [None]
  - Parkinson^s disease [None]
  - Neuropathy peripheral [None]
  - Product dose omission issue [None]
  - Near death experience [None]
  - Sepsis [None]
  - Weight decreased [None]
